FAERS Safety Report 8010758-0 (Version None)
Quarter: 2011Q4

REPORT INFORMATION
  Report Type: 
  Country: None (occurrence: None)
  Receive Date: 20111228
  Receipt Date: 20111219
  Transmission Date: 20120403
  Serious: Yes (Life-Threatening)
  Sender: FDA-Public Use
  Company Number: FR-JNJFOC-20111208128

PATIENT
  Age: 8 Decade
  Sex: Female

DRUGS (6)
  1. METHOTREXATE [Suspect]
     Route: 048
     Dates: start: 20100101
  2. PROPRANOLOL [Concomitant]
     Indication: SUPRAVENTRICULAR TACHYCARDIA
     Dates: start: 20100701
  3. REMICADE [Suspect]
     Indication: RHEUMATOID ARTHRITIS
     Route: 042
     Dates: end: 20101101
  4. REMICADE [Suspect]
     Route: 042
     Dates: start: 20020101
  5. METHOTREXATE [Suspect]
     Indication: RHEUMATOID ARTHRITIS
     Route: 048
  6. CARBIMAZOLE [Concomitant]
     Indication: GOITRE
     Dates: start: 20100601

REACTIONS (2)
  - METASTASES TO BONE [None]
  - LUNG SQUAMOUS CELL CARCINOMA STAGE UNSPECIFIED [None]
